FAERS Safety Report 15360503 (Version 1)
Quarter: 2018Q3

REPORT INFORMATION
  Report Type: Spontaneous
  Country: US (occurrence: US)
  Receive Date: 20180831
  Receipt Date: 20180831
  Transmission Date: 20181010
  Serious: Yes (Other)
  Sender: FDA-Public Use
  Company Number: None

PATIENT
  Age: 9 Year
  Sex: Female
  Weight: 51.75 kg

DRUGS (2)
  1. POLYSORBATE [Suspect]
     Active Substance: POLYSORBATE
     Indication: PNEUMONIA
  2. PREDNISONE. [Suspect]
     Active Substance: PREDNISONE

REACTIONS (5)
  - Allergic reaction to excipient [None]
  - Paraesthesia oral [None]
  - Hypersensitivity [None]
  - Blood pressure fluctuation [None]
  - Dyspnoea [None]

NARRATIVE: CASE EVENT DATE: 20160114
